FAERS Safety Report 11324447 (Version 1)
Quarter: 2015Q3

REPORT INFORMATION
  Report Type: Spontaneous
  Country: CA (occurrence: CA)
  Receive Date: 20150730
  Receipt Date: 20150730
  Transmission Date: 20151125
  Serious: Yes (Hospitalization)
  Sender: FDA-Public Use
  Company Number: CA-BAYER-2015-386516

PATIENT
  Age: 62 Year
  Sex: Female
  Weight: 52.3 kg

DRUGS (6)
  1. BUPIVACAINE W/FENTANYL [Suspect]
     Active Substance: BUPIVACAINE\FENTANYL
     Indication: BACK PAIN
     Dosage: BOLUSED 4 ML
     Route: 008
  2. HEPARIN [Suspect]
     Active Substance: HEPARIN SODIUM
     Dosage: 5000 U, BID STARTED 5H AFTER SURGERY
     Route: 058
  3. ACETYLSALICYLIC ACID({=100 MG) [Suspect]
     Active Substance: ASPIRIN
     Dosage: 80 MG, UNK
     Route: 048
  4. BUPIVACAINE W/FENTANYL [Suspect]
     Active Substance: BUPIVACAINE\FENTANYL
     Indication: BACK PAIN
     Dosage: INFUSION RATE 10 ML/H
     Route: 008
  5. BUPIVACAINE W/FENTANYL [Suspect]
     Active Substance: BUPIVACAINE\FENTANYL
     Indication: BACK PAIN
     Dosage: BUPIVACAINE 1MG/ML AND FENTANYL 3?G/ML
     Route: 008
  6. CELECOXIB. [Suspect]
     Active Substance: CELECOXIB
     Dosage: 200 MG, BID INITIATED ON POST-OPERATIVE DAY 1
     Route: 048

REACTIONS (2)
  - Spinal epidural haematoma [Recovered/Resolved]
  - Labelled drug-drug interaction medication error [None]
